FAERS Safety Report 8816051 (Version 1)
Quarter: 2012Q4

REPORT INFORMATION
  Report Type: 
  Country: FR (occurrence: FR)
  Receive Date: 20120928
  Receipt Date: 20120928
  Transmission Date: 20130627
  Serious: Yes (Hospitalization)
  Sender: FDA-Public Use
  Company Number: FR-ABBOTT-12P-056-0983858-00

PATIENT
  Age: 56 Year
  Sex: Female

DRUGS (9)
  1. LIPANTHYL [Suspect]
     Indication: HYPERTRIGLYCERIDAEMIA
     Route: 048
     Dates: start: 20120629
  2. ALLOPURINOL [Suspect]
     Indication: HYPERURICAEMIA
     Route: 048
     Dates: start: 20120629
  3. BACTRIM [Suspect]
     Indication: PYREXIA
     Route: 048
     Dates: start: 20120712, end: 20120719
  4. KARDEGIC [Concomitant]
     Indication: PRODUCT USED FOR UNKNOWN INDICATION
  5. CO-OLMETEC [Concomitant]
     Indication: PRODUCT USED FOR UNKNOWN INDICATION
  6. XELEVIA [Concomitant]
     Indication: PRODUCT USED FOR UNKNOWN INDICATION
  7. GLUCOPHAGE [Concomitant]
     Indication: PRODUCT USED FOR UNKNOWN INDICATION
  8. ROCEPHINE [Concomitant]
     Indication: PYELONEPHRITIS
     Dosage: 1 Dosage form x 1
  9. DETENSIEL [Concomitant]
     Indication: PRODUCT USED FOR UNKNOWN INDICATION

REACTIONS (10)
  - Localised oedema [Unknown]
  - Toxic epidermal necrolysis [Recovering/Resolving]
  - Pain [Recovered/Resolved]
  - Oedema peripheral [Recovered/Resolved]
  - Conjunctivitis [Unknown]
  - Cheilitis [Unknown]
  - General physical health deterioration [Recovering/Resolving]
  - Pyrexia [Recovered/Resolved]
  - Influenza like illness [Recovered/Resolved]
  - Renal failure acute [Recovered/Resolved]
